FAERS Safety Report 4863135-5 (Version None)
Quarter: 2005Q4

REPORT INFORMATION
  Report Type: 
  Country: None (occurrence: None)
  Receive Date: 20051212
  Receipt Date: 20051018
  Transmission Date: 20060501
  Serious: Yes (Hospitalization)
  Sender: FDA-Public Use
  Company Number: 602739

PATIENT
  Age: 22 Year
  Sex: Female
  Weight: 101.7 kg

DRUGS (5)
  1. FIBRIN SEALANT VAPOR HEATED, SOLVENT DETERGENT, 4 IU THROMBIN, DEEP FR [Suspect]
     Dosage: 1.2 CC; ONCE; TOP
     Route: 061
     Dates: start: 20040827, end: 20040827
  2. SULFAMYLON [Concomitant]
  3. VANCOMYCIN [Concomitant]
  4. ACYCLOVIR [Concomitant]
  5. VICODIN [Concomitant]

REACTIONS (3)
  - RASH PUSTULAR [None]
  - TRANSPLANT REJECTION [None]
  - WOUND INFECTION [None]
